FAERS Safety Report 14663083 (Version 2)
Quarter: 2018Q4

REPORT INFORMATION
  Report Type: Spontaneous
  Country: FR (occurrence: FR)
  Receive Date: 20180321
  Receipt Date: 20181023
  Transmission Date: 20190204
  Serious: Yes (Other)
  Sender: FDA-Public Use
  Company Number: FR-MERCK KGAA-2044200

PATIENT
  Age: 74 Year
  Sex: Female

DRUGS (1)
  1. EUTHYROX [Suspect]
     Active Substance: LEVOTHYROXINE SODIUM
     Indication: PRODUCT USED FOR UNKNOWN INDICATION

REACTIONS (32)
  - Pain [None]
  - High density lipoprotein increased [None]
  - Asthenia [None]
  - Arthralgia [None]
  - Loss of personal independence in daily activities [None]
  - Amnesia [None]
  - Social problem [None]
  - Fatigue [None]
  - Gastrointestinal disorder [None]
  - Crying [None]
  - Confusional state [None]
  - Blood thyroid stimulating hormone decreased [None]
  - Muscle spasms [None]
  - Dizziness [None]
  - Stress [None]
  - Urinary tract infection [None]
  - Depression [None]
  - Suicidal ideation [None]
  - Anti-thyroid antibody positive [None]
  - Myalgia [None]
  - Affective disorder [None]
  - Anxiety [None]
  - Blood cholesterol increased [None]
  - Anaemia [None]
  - Blood triglycerides increased [None]
  - Drug intolerance [None]
  - Personal relationship issue [None]
  - Nervousness [None]
  - Headache [None]
  - Nausea [None]
  - Vertigo [None]
  - Alopecia [None]

NARRATIVE: CASE EVENT DATE: 20170120
